FAERS Safety Report 7106754-8 (Version None)
Quarter: 2010Q4

REPORT INFORMATION
  Report Type: 
  Country: None (occurrence: None)
  Receive Date: 20101116
  Receipt Date: 20100824
  Transmission Date: 20110411
  Serious: No
  Sender: FDA-Public Use
  Company Number: US-ABBOTT-10P-163-0665926-00

PATIENT
  Sex: Female
  Weight: 65.83 kg

DRUGS (5)
  1. SIMCOR [Suspect]
     Indication: CAROTID ARTERY OCCLUSION
     Dosage: 500/20MG AT BEDTIME
     Dates: start: 20100820
  2. ASPIRIN [Concomitant]
     Indication: PRODUCT USED FOR UNKNOWN INDICATION
     Dosage: HALF HOUR BEFORE SIMCOR
  3. ATENOLOL [Concomitant]
     Indication: PRODUCT USED FOR UNKNOWN INDICATION
  4. LISINOPRIL [Concomitant]
     Indication: PRODUCT USED FOR UNKNOWN INDICATION
  5. LEXAPRIL [Concomitant]
     Indication: PRODUCT USED FOR UNKNOWN INDICATION

REACTIONS (4)
  - DIZZINESS [None]
  - EYELID OEDEMA [None]
  - NAUSEA [None]
  - OEDEMA PERIPHERAL [None]
